FAERS Safety Report 9736402 (Version 1)
Quarter: 2013Q4

REPORT INFORMATION
  Report Type: Spontaneous
  Country: US (occurrence: None)
  Receive Date: 20131204
  Receipt Date: 20131204
  Transmission Date: 20140711
  Serious: Yes (Death)
  Sender: FDA-Public Use
  Company Number: US-AIKEM-000382

PATIENT
  Age: 63 Year
  Sex: Female

DRUGS (7)
  1. AMLODIPINE [Suspect]
     Route: 048
  2. METOPROLOL (METOPROLOL) [Suspect]
     Route: 048
  3. RISPERIDONE (RISPERIDONE) [Suspect]
     Route: 048
  4. HYDROCODONE/ACETAMINOPHEN [Suspect]
     Route: 048
  5. OLANZAPINE (OLANZAPINE) [Suspect]
     Route: 048
  6. VALPROIC ACID (VALPROIC ACID) [Suspect]
     Route: 048
  7. LISINOPRIL (LISINOPRIL) [Suspect]
     Route: 048

REACTIONS (2)
  - Exposure via ingestion [None]
  - Completed suicide [None]
